FAERS Safety Report 19752493 (Version 5)
Quarter: 2022Q1

REPORT INFORMATION
  Report Type: Report from Study
  Country: US (occurrence: US)
  Receive Date: 20210826
  Receipt Date: 20220226
  Transmission Date: 20220423
  Serious: Yes (Other)
  Sender: FDA-Public Use
  Company Number: US-NOVARTISTESTPH-NVSC2021US192624

PATIENT
  Sex: Male

DRUGS (1)
  1. ENTRESTO [Suspect]
     Active Substance: SACUBITRIL\VALSARTAN
     Indication: Product used for unknown indication
     Dosage: 1 DF, BID (49/51 MG)
     Route: 048
     Dates: start: 202101

REACTIONS (8)
  - Glucose tolerance impaired [Unknown]
  - Weight fluctuation [Unknown]
  - Dyspnoea [Unknown]
  - Pollakiuria [Unknown]
  - Weight decreased [Unknown]
  - Device malfunction [Unknown]
  - Fatigue [Unknown]
  - Dizziness [Unknown]
